FAERS Safety Report 6334028-1 (Version None)
Quarter: 2009Q3

REPORT INFORMATION
  Report Type: 
  Country: None (occurrence: None)
  Receive Date: 20090829
  Receipt Date: 20090624
  Transmission Date: 20100115
  Serious: No
  Sender: FDA-Public Use
  Company Number: US-ABBOTT-09P-163-0582031-00

PATIENT
  Sex: Male
  Weight: 108.96 kg

DRUGS (5)
  1. SIMCOR [Suspect]
     Indication: HIGH DENSITY LIPOPROTEIN DECREASED
     Dosage: 500/20 MG X2 AT BEDTIME
     Dates: start: 20090601
  2. BYSTOLIC [Concomitant]
     Indication: DRUG USE FOR UNKNOWN INDICATION
  3. TARKA [Concomitant]
     Indication: DRUG USE FOR UNKNOWN INDICATION
  4. ANTACID TAB [Concomitant]
     Indication: DRUG USE FOR UNKNOWN INDICATION
  5. ASPIRIN [Concomitant]
     Indication: DRUG USE FOR UNKNOWN INDICATION

REACTIONS (2)
  - INSOMNIA [None]
  - SKIN BURNING SENSATION [None]
